FAERS Safety Report 18130259 (Version 1)
Quarter: 2020Q3

REPORT INFORMATION
  Report Type: Spontaneous
  Country: US (occurrence: US)
  Receive Date: 20200810
  Receipt Date: 20200810
  Transmission Date: 20201103
  Serious: Yes (Death)
  Sender: FDA-Public Use
  Company Number: None

PATIENT
  Sex: Male

DRUGS (13)
  1. CALCITRIOL. [Concomitant]
     Active Substance: CALCITRIOL
  2. FREESTYLE [Concomitant]
  3. MIDORINE [Concomitant]
     Active Substance: MIDODRINE
  4. ZYTIGA [Suspect]
     Active Substance: ABIRATERONE ACETATE
     Indication: PROSTATE CANCER
     Route: 048
     Dates: start: 20191203
  5. LEVEMIR [Concomitant]
     Active Substance: INSULIN DETEMIR
  6. CARVEDILOL. [Concomitant]
     Active Substance: CARVEDILOL
  7. CLOPIDOGREL [Concomitant]
     Active Substance: CLOPIDOGREL BISULFATE
  8. INSULIN ASPA [Concomitant]
  9. TAMSULOSIN [Concomitant]
     Active Substance: TAMSULOSIN
  10. DRONABINOL. [Concomitant]
     Active Substance: DRONABINOL
  11. DOK [Concomitant]
     Active Substance: DOCUSATE SODIUM
  12. PREDNISONE. [Concomitant]
     Active Substance: PREDNISONE
  13. LISINOPRIL. [Concomitant]
     Active Substance: LISINOPRIL

REACTIONS (1)
  - Death [None]
